FAERS Safety Report 10238103 (Version 1)
Quarter: 2014Q2

REPORT INFORMATION
  Report Type: Spontaneous
  Country: BR (occurrence: BR)
  Receive Date: 20140616
  Receipt Date: 20140616
  Transmission Date: 20141212
  Serious: Yes (Other)
  Sender: FDA-Public Use
  Company Number: BR-ROCHE-1416098

PATIENT
  Sex: Male

DRUGS (4)
  1. TAMIFLU [Suspect]
     Indication: H1N1 INFLUENZA
     Dosage: DURING 5 DAYS
     Route: 065
     Dates: start: 20140527
  2. DIPYRONE [Concomitant]
     Indication: PYREXIA
     Route: 065
  3. SALINE SOLUTION [Concomitant]
  4. ALLEGRA [Concomitant]
     Indication: COUGH

REACTIONS (1)
  - H1N1 influenza [Recovering/Resolving]
